FAERS Safety Report 4330216-4 (Version None)
Quarter: 2004Q1

REPORT INFORMATION
  Report Type: 
  Country: None (occurrence: None)
  Receive Date: 20040329
  Receipt Date: 20040315
  Transmission Date: 20041129
  Serious: Yes (Hospitalization)
  Sender: FDA-Public Use
  Company Number: 03P-008-0240216-00

PATIENT
  Age: 65 Year
  Sex: Male
  Weight: 100.9 kg

DRUGS (7)
  1. MERIDIA [Suspect]
     Indication: OBESITY
     Dosage: 10 MG 1 IN 1 D PER ORAL
     Route: 048
     Dates: start: 20030523, end: 20031117
  2. OMEPRAZOLE [Concomitant]
  3. ATENOLOL [Concomitant]
  4. ALLOPURINOL [Concomitant]
  5. FLOMEX [Concomitant]
  6. INTRAUTERINE [Concomitant]
  7. ALCLOFENAC [Concomitant]

REACTIONS (6)
  - BENIGN PROSTATIC HYPERPLASIA [None]
  - CHOLELITHIASIS [None]
  - CONSTIPATION [None]
  - INGUINAL HERNIA [None]
  - POST PROCEDURAL COMPLICATION [None]
  - URINARY RETENTION [None]
